FAERS Safety Report 13006856 (Version 1)
Quarter: 2016Q4

REPORT INFORMATION
  Report Type: Spontaneous
  Country: US (occurrence: US)
  Receive Date: 20161207
  Receipt Date: 20161207
  Transmission Date: 20170207
  Serious: Yes (Hospitalization)
  Sender: FDA-Public Use
  Company Number: US-BAYER-2016-150082

PATIENT
  Age: 68 Year
  Sex: Male
  Weight: 108.86 kg

DRUGS (5)
  1. XARELTO [Suspect]
     Active Substance: RIVAROXABAN
     Indication: DEEP VEIN THROMBOSIS
     Dosage: 20 MG, QD
     Route: 048
     Dates: start: 20150729
  2. CELEBREX [Suspect]
     Active Substance: CELECOXIB
     Indication: ARTHRITIS
     Dosage: 200 MG, QD
     Route: 065
     Dates: start: 2007, end: 20150729
  3. ACETYLSALICYLIC ACID (} 100 MG) [Suspect]
     Active Substance: ASPIRIN
     Indication: HEART RATE ABNORMAL
     Dosage: 182 MG, BID
     Route: 065
     Dates: start: 20151208, end: 20160728
  4. CELEBREX [Suspect]
     Active Substance: CELECOXIB
     Indication: ARTHRITIS
     Dosage: 200 MG, UNK
     Route: 065
     Dates: start: 20151111
  5. CARDIZEM [Concomitant]
     Active Substance: DILTIAZEM HYDROCHLORIDE
     Indication: ATRIAL FIBRILLATION
     Dosage: 20 MG, UNK
     Route: 065
     Dates: start: 20151208

REACTIONS (1)
  - Blood urine present [Recovering/Resolving]

NARRATIVE: CASE EVENT DATE: 20160411
